FAERS Safety Report 22381545 (Version 1)
Quarter: 2023Q2

REPORT INFORMATION
  Report Type: Spontaneous
  Country: TW (occurrence: None)
  Receive Date: 20230530
  Receipt Date: 20230530
  Transmission Date: 20230722
  Serious: Yes (Other)
  Sender: FDA-Public Use
  Company Number: TW-ROCHE-3356042

PATIENT
  Sex: Male

DRUGS (15)
  1. RITUXIMAB [Suspect]
     Active Substance: RITUXIMAB
     Indication: Diffuse large B-cell lymphoma
     Dosage: 1ST LINE SYSTEMIC TREATMENT, R-CHOP
     Route: 065
     Dates: start: 20140109, end: 20140603
  2. RITUXIMAB [Suspect]
     Active Substance: RITUXIMAB
     Dosage: 2ND LINE SYSTEMIC TREATMENT, R-HD MTX X 5 CYCLES, THE MOST RECENT BRAIN IMAGE REVEALED NO BRAIN INVO
     Route: 065
     Dates: start: 20191104, end: 20200304
  3. RITUXIMAB [Suspect]
     Active Substance: RITUXIMAB
     Dosage: 3RD LINE SYSTEMIC TREATMENT, R-ESHAP 3 CYCLES
     Route: 065
     Dates: start: 20221212, end: 20230306
  4. RITUXIMAB [Suspect]
     Active Substance: RITUXIMAB
     Dosage: 4TH LINE SYSTEMIC TREATMENT, R-BAC REGIMEN
     Route: 065
     Dates: start: 20230515, end: 20230515
  5. CYCLOPHOSPHAMIDE [Concomitant]
     Active Substance: CYCLOPHOSPHAMIDE
     Indication: Diffuse large B-cell lymphoma
     Dosage: R-CHOP
     Dates: start: 20140109, end: 20140603
  6. DOXORUBICIN [Concomitant]
     Active Substance: DOXORUBICIN
     Indication: Diffuse large B-cell lymphoma
     Dosage: R-CHOP
     Dates: start: 20140109, end: 20140603
  7. VINCRISTINE [Concomitant]
     Active Substance: VINCRISTINE
     Indication: Diffuse large B-cell lymphoma
     Dosage: R-CHOP
     Dates: start: 20140109, end: 20140603
  8. PREDNISONE [Concomitant]
     Active Substance: PREDNISONE
     Indication: Diffuse large B-cell lymphoma
     Dosage: R-CHOP
     Dates: start: 20140109, end: 20140603
  9. METHOTREXATE [Concomitant]
     Active Substance: METHOTREXATE
     Indication: Diffuse large B-cell lymphoma
     Dosage: R-HD MTX
     Dates: start: 20191104, end: 20200304
  10. ETOPOSIDE [Concomitant]
     Active Substance: ETOPOSIDE
     Indication: Diffuse large B-cell lymphoma
     Dosage: R-ESHAP
     Dates: start: 20221212, end: 20230306
  11. METHYLPREDNISOLONE [Concomitant]
     Active Substance: METHYLPREDNISOLONE
     Indication: Diffuse large B-cell lymphoma
     Dosage: R-ESHAP
     Dates: start: 20221212, end: 20230306
  12. CISPLATIN [Concomitant]
     Active Substance: CISPLATIN
     Indication: Diffuse large B-cell lymphoma
     Dosage: R-ESHAP
     Dates: start: 20221212, end: 20230306
  13. CYTARABINE [Concomitant]
     Active Substance: CYTARABINE
     Indication: Diffuse large B-cell lymphoma
     Dosage: R-ESHAP
     Dates: start: 20221212, end: 20230306
  14. CYTARABINE [Concomitant]
     Active Substance: CYTARABINE
     Dosage: R-BAC REGIMEN
     Dates: start: 20230515, end: 20230515
  15. BENDAMUSTINE [Concomitant]
     Active Substance: BENDAMUSTINE
     Indication: Diffuse large B-cell lymphoma
     Dosage: R-BAC REGIMEN
     Dates: start: 20230515, end: 20230515

REACTIONS (2)
  - Disease progression [Unknown]
  - Metastatic lymphoma [Unknown]
